FAERS Safety Report 5925453-9 (Version None)
Quarter: 2008Q4

REPORT INFORMATION
  Report Type: 
  Country: None (occurrence: None)
  Receive Date: 20081021
  Receipt Date: 20081010
  Transmission Date: 20090506
  Serious: Yes (Hospitalization, Other)
  Sender: FDA-Public Use
  Company Number: US-MERCK-0606USA03852

PATIENT
  Age: 62 Year
  Sex: Female
  Weight: 63 kg

DRUGS (11)
  1. FOSAMAX [Suspect]
     Indication: OSTEOPOROSIS
     Route: 048
     Dates: start: 19971216, end: 20050101
  2. FOSAMAX [Suspect]
     Route: 048
     Dates: start: 20050103, end: 20060427
  3. PROCARDIA [Concomitant]
     Indication: BLOOD PRESSURE
     Route: 065
     Dates: start: 19720101
  4. OXYCONTIN [Concomitant]
     Route: 065
  5. NEXIUM [Concomitant]
     Route: 065
  6. LORCET-HD [Concomitant]
     Route: 065
  7. MOTRIN [Concomitant]
     Route: 065
  8. MIACALCIN [Concomitant]
     Route: 065
     Dates: start: 20060501
  9. SINGULAIR [Concomitant]
     Indication: ASTHMA
     Route: 065
     Dates: start: 20000101
  10. OXYGEN [Concomitant]
     Indication: ASTHMA
     Route: 065
     Dates: start: 20000101
  11. FOSAMAX PLUS D [Concomitant]
     Route: 048
     Dates: start: 20050707

REACTIONS (37)
  - ABSCESS [None]
  - ACTINIC KERATOSIS [None]
  - AORTIC CALCIFICATION [None]
  - AORTIC DILATATION [None]
  - ARTHRALGIA [None]
  - ASTHMA [None]
  - BACK PAIN [None]
  - BASAL CELL CARCINOMA [None]
  - BLOOD GLUCOSE INCREASED [None]
  - BRONCHOPNEUMONIA [None]
  - CARDIAC FAILURE CONGESTIVE [None]
  - CARDIOMEGALY [None]
  - CHRONIC OBSTRUCTIVE PULMONARY DISEASE [None]
  - CONFUSIONAL STATE [None]
  - DEHYDRATION [None]
  - DENTAL CARIES [None]
  - DIVERTICULITIS [None]
  - EMPHYSEMA [None]
  - FALL [None]
  - GINGIVAL BLEEDING [None]
  - INFLUENZA [None]
  - JOINT SPRAIN [None]
  - KYPHOSIS [None]
  - LIP NEOPLASM MALIGNANT STAGE UNSPECIFIED [None]
  - LOBAR PNEUMONIA [None]
  - MENTAL DISORDER [None]
  - NEUROPATHY PERIPHERAL [None]
  - OSTEOARTHRITIS [None]
  - OSTEONECROSIS [None]
  - OSTEOPENIA [None]
  - PATELLA FRACTURE [None]
  - PNEUMONIA [None]
  - RESTLESS LEGS SYNDROME [None]
  - SPINAL FRACTURE [None]
  - STATUS ASTHMATICUS [None]
  - STRESS POLYCYTHAEMIA [None]
  - TRICUSPID VALVE INCOMPETENCE [None]
